FAERS Safety Report 5168503-2 (Version None)
Quarter: 2006Q4

REPORT INFORMATION
  Report Type: 
  Country: None (occurrence: None)
  Receive Date: 20061201
  Receipt Date: 20061120
  Transmission Date: 20070319
  Serious: Yes (Other)
  Sender: FDA-Public Use
  Company Number: 2006132257

PATIENT
  Age: 47 Year
  Sex: Male

DRUGS (2)
  1. CELEBREX [Suspect]
  2. NSAID'S                 (NSAID'S) [Suspect]

REACTIONS (2)
  - VENTRICULAR HYPOKINESIA [None]
  - VIRAL MYOCARDITIS [None]
